FAERS Safety Report 23224348 (Version 2)
Quarter: 2024Q3

REPORT INFORMATION
  Report Type: Report from Study
  Country: EG (occurrence: EG)
  Receive Date: 20231124
  Receipt Date: 20240826
  Transmission Date: 20241017
  Serious: Yes (Other)
  Sender: SANDOZ
  Company Number: EG-SANDOZ-SDZ2023EG043718

PATIENT
  Age: 4 Year
  Sex: Male
  Weight: 30 kg

DRUGS (5)
  1. OMNITROPE [Suspect]
     Active Substance: SOMATROPIN
     Indication: Growth hormone deficiency
     Dosage: 0.7 MG, QD
     Route: 058
     Dates: start: 20201216
  2. OMNITROPE [Suspect]
     Active Substance: SOMATROPIN
     Dosage: 0.8 MG, QD DECREASED TO 0.7 MG
     Route: 058
     Dates: start: 20201216
  3. OMNITROPE [Suspect]
     Active Substance: SOMATROPIN
     Dosage: 0.5 INCREASED GRADUALLY TO 1 MG DUE TO NORMAL GROWTH/DAY
     Route: 058
     Dates: start: 20201216
  4. ELBAVIT [Concomitant]
     Indication: Nutritional supplementation
     Dosage: UNK (5 CM/DAY)
     Route: 048
  5. Ferroglobin [Concomitant]
     Indication: Anaemia
     Dosage: UNK UNK, QD 5 CM, QD
     Route: 065
     Dates: start: 202404

REACTIONS (4)
  - Insulin-like growth factor increased [Recovering/Resolving]
  - Weight increased [Recovering/Resolving]
  - Expired device used [Unknown]
  - Wrong technique in product usage process [Unknown]

NARRATIVE: CASE EVENT DATE: 20201216
